FAERS Safety Report 10159211 (Version 1)
Quarter: 2014Q2

REPORT INFORMATION
  Report Type: Spontaneous
  Country: US (occurrence: US)
  Receive Date: 20140508
  Receipt Date: 20140508
  Transmission Date: 20141212
  Serious: No
  Sender: FDA-Public Use
  Company Number: US-009507513-1404USA010521

PATIENT
  Age: 67 Year
  Sex: Female

DRUGS (1)
  1. ASMANEX TWISTHALER [Suspect]
     Indication: ASTHMA
     Dosage: 220 MICROGRAM, 1 INHALATION DAILY
     Route: 055
     Dates: start: 20140410

REACTIONS (3)
  - Nasal congestion [Recovering/Resolving]
  - Respiratory tract congestion [Not Recovered/Not Resolved]
  - Drug administration error [Unknown]
